FAERS Safety Report 8716848 (Version 4)
Quarter: 2014Q3

REPORT INFORMATION
  Report Type: Spontaneous
  Country: US (occurrence: US)
  Receive Date: 20120810
  Receipt Date: 20140915
  Transmission Date: 20150326
  Serious: Yes (Hospitalization)
  Sender: FDA-Public Use
  Company Number: US-BAYER-2012-079009

PATIENT
  Age: 27 Year
  Sex: Female
  Weight: 61.22 kg

DRUGS (7)
  1. DILAUDID [Concomitant]
     Active Substance: HYDROMORPHONE HYDROCHLORIDE
  2. CAFFEINE. [Concomitant]
     Active Substance: CAFFEINE
     Dosage: 500 MG, UNK
  3. YAZ [Suspect]
     Active Substance: DROSPIRENONE\ETHINYL ESTRADIOL
     Indication: ACNE
     Dosage: UNK
     Route: 048
     Dates: start: 200811, end: 200912
  4. BENADRYL [Concomitant]
     Active Substance: DIPHENHYDRAMINE HYDROCHLORIDE
     Dosage: 25 MG, UNK
  5. COMPAZINE [Concomitant]
     Active Substance: PROCHLORPERAZINE MALEATE
     Dosage: 5 MG, UNK
  6. YASMIN [Suspect]
     Active Substance: DROSPIRENONE\ETHINYL ESTRADIOL
     Indication: ACNE
     Dosage: UNK
     Route: 048
     Dates: start: 1999, end: 200710
  7. YASMIN [Suspect]
     Active Substance: DROSPIRENONE\ETHINYL ESTRADIOL
     Indication: CONTRACEPTION

REACTIONS (7)
  - Cerebrovascular accident [None]
  - Emotional distress [None]
  - Anhedonia [None]
  - Pain [None]
  - Anxiety [None]
  - Transient ischaemic attack [None]
  - Injury [None]

NARRATIVE: CASE EVENT DATE: 20091119
